FAERS Safety Report 4308135-9 (Version None)
Quarter: 2004Q1

REPORT INFORMATION
  Report Type: 
  Country: None (occurrence: None)
  Receive Date: 20040301
  Receipt Date: 20030528
  Transmission Date: 20041129
  Serious: No
  Sender: FDA-Public Use
  Company Number: US-BRISTOL-MYERS SQUIBB COMPANY-12296158

PATIENT
  Age: 46 Year
  Sex: Male
  Weight: 159 kg

DRUGS (8)
  1. GLUCOPHAGE [Suspect]
     Indication: DIABETES MELLITUS NON-INSULIN-DEPENDENT
     Dosage: DURATION OF THERAPY:  ^5 OR 6 YEARS^
     Dates: end: 20030101
  2. ACTOS [Concomitant]
  3. ADIPEX [Concomitant]
  4. ASPIRIN [Concomitant]
  5. AMITRIPTYLINE HCL [Concomitant]
  6. TYLENOL W/ CODEINE NO. 3 [Concomitant]
  7. LASIX [Concomitant]
  8. PROZAC [Concomitant]

REACTIONS (2)
  - BLOOD GLUCOSE INCREASED [None]
  - TOOTH DISORDER [None]
